FAERS Safety Report 16251634 (Version 1)
Quarter: 2019Q2

REPORT INFORMATION
  Report Type: Spontaneous
  Country: JP (occurrence: JP)
  Receive Date: 20190429
  Receipt Date: 20190429
  Transmission Date: 20190711
  Serious: Yes (Hospitalization)
  Sender: FDA-Public Use
  Company Number: JP-JNJFOC-20190322919

PATIENT
  Age: 73 Year
  Sex: Male
  Weight: 60 kg

DRUGS (7)
  1. ZYTIGA [Suspect]
     Active Substance: ABIRATERONE ACETATE
     Indication: PRODUCT USED FOR UNKNOWN INDICATION
     Route: 048
     Dates: start: 20190109, end: 20190304
  2. POTASSIUM ASPARTATE [Concomitant]
     Active Substance: POTASSIUM ASPARTATE
     Dosage: AFTER EACH MEAL
     Route: 048
     Dates: start: 20180730
  3. DOCETAXEL. [Concomitant]
     Active Substance: DOCETAXEL
     Route: 065
     Dates: start: 20180723, end: 20181112
  4. CALFINA [Concomitant]
     Active Substance: ALFACALCIDOL
     Dosage: IN THE MORNING
     Route: 048
     Dates: start: 20180730
  5. TAKECAB [Concomitant]
     Active Substance: VONOPRAZAN FUMURATE
     Dosage: IN THE MORNING
     Route: 048
  6. PREDNISOLONE. [Concomitant]
     Active Substance: PREDNISOLONE
     Route: 048
     Dates: start: 20180625
  7. URIEF [Concomitant]
     Active Substance: SILODOSIN
     Dosage: IN THE MORNING AND EVENING
     Route: 048

REACTIONS (1)
  - Platelet count decreased [Not Recovered/Not Resolved]

NARRATIVE: CASE EVENT DATE: 20190204
